FAERS Safety Report 24540157 (Version 1)
Quarter: 2024Q4

REPORT INFORMATION
  Report Type: Spontaneous
  Country: CN (occurrence: CN)
  Receive Date: 20241023
  Receipt Date: 20241023
  Transmission Date: 20250115
  Serious: Yes (Hospitalization)
  Sender: BAYER HEALTHCARE PHARMACEUTICALS INC.
  Company Number: CN-BAYER-2024A151573

PATIENT
  Age: 76 Year
  Sex: Female
  Weight: 52 kg

DRUGS (1)
  1. GLUCOBAY [Suspect]
     Active Substance: ACARBOSE
     Indication: Type 2 diabetes mellitus
     Dosage: 50 MG, TID
     Route: 048
     Dates: start: 20241004, end: 20241007

REACTIONS (8)
  - Abdominal distension [Recovering/Resolving]
  - Flatulence [Recovering/Resolving]
  - Abdominal pain [Recovering/Resolving]
  - Vomiting [Recovering/Resolving]
  - Diarrhoea [Recovering/Resolving]
  - Blood pressure systolic increased [None]
  - Heart rate increased [None]
  - Gastrointestinal sounds abnormal [None]

NARRATIVE: CASE EVENT DATE: 20241006
